FAERS Safety Report 4402230-1 (Version None)
Quarter: 2004Q3

REPORT INFORMATION
  Report Type: 
  Country: None (occurrence: None)
  Receive Date: 20040720
  Receipt Date: 20040713
  Transmission Date: 20050211
  Serious: Yes (Other)
  Sender: FDA-Public Use
  Company Number: PHEH2004US07483

PATIENT
  Age: 54 Year
  Sex: Female

DRUGS (4)
  1. CAFERGOT [Suspect]
     Indication: MIGRAINE
     Dosage: 1/2 SUPP PRN
     Route: 054
     Dates: start: 19790101, end: 20040701
  2. SYNTHROID [Concomitant]
  3. LUVOX [Concomitant]
  4. TRAZODONE HCL [Concomitant]

REACTIONS (3)
  - NEUROPATHY PERIPHERAL [None]
  - PAIN IN EXTREMITY [None]
  - PARAESTHESIA [None]
